FAERS Safety Report 4753118-8 (Version None)
Quarter: 2005Q3

REPORT INFORMATION
  Report Type: 
  Country: None (occurrence: None)
  Receive Date: 20050826
  Receipt Date: 20050309
  Transmission Date: 20060218
  Serious: Yes (Hospitalization)
  Sender: FDA-Public Use
  Company Number: CA-MERCK-0503CAN00090

PATIENT
  Age: 60 Year
  Sex: Male
  Weight: 73 kg

DRUGS (41)
  1. NORFLOXACIN [Concomitant]
     Route: 065
     Dates: start: 20011113
  2. DOXYCYCLINE [Concomitant]
     Route: 065
     Dates: start: 20011120
  3. ACETAMINOPHEN AND CODEINE PHOSPHATE [Concomitant]
     Indication: OSTEOARTHRITIS
     Route: 065
     Dates: start: 20000107
  4. ACETAMINOPHEN AND CODEINE PHOSPHATE [Concomitant]
     Indication: PAIN
     Route: 065
     Dates: start: 20000107
  5. CELECOXIB [Concomitant]
     Indication: OSTEOARTHRITIS
     Route: 065
     Dates: start: 20000107, end: 20010312
  6. CELECOXIB [Concomitant]
     Indication: PAIN
     Route: 065
     Dates: start: 20000107, end: 20010312
  7. MELOXICAM [Concomitant]
     Indication: OSTEOARTHRITIS
     Route: 065
     Dates: start: 20020108
  8. MELOXICAM [Concomitant]
     Indication: PAIN
     Route: 065
     Dates: start: 20020108
  9. NAPROXEN [Concomitant]
     Indication: OSTEOARTHRITIS
     Route: 065
     Dates: start: 20020924
  10. NAPROXEN [Concomitant]
     Indication: PAIN
     Route: 065
     Dates: start: 20020924
  11. ACETAMINOPHEN [Concomitant]
     Indication: OSTEOARTHRITIS
     Route: 065
     Dates: start: 20000101
  12. INDOMETHACIN [Concomitant]
     Indication: OSTEOARTHRITIS
     Route: 065
     Dates: start: 20020101, end: 20020101
  13. METFORMIN HYDROCHLORIDE [Concomitant]
     Indication: DIABETES MELLITUS
     Route: 065
  14. IBUPROFEN [Concomitant]
     Indication: OSTEOARTHRITIS
     Route: 065
     Dates: start: 19950101, end: 20010101
  15. CEFUROXIME [Concomitant]
     Route: 065
     Dates: start: 20021007
  16. FUSIDIC ACID [Concomitant]
     Route: 065
     Dates: start: 20021007
  17. SULFAMETHOXAZOLE AND TRIMETHOPRIM [Concomitant]
     Indication: PROSTATITIS
     Route: 065
  18. VIOXX [Suspect]
     Indication: OSTEOARTHRITIS
     Route: 048
     Dates: start: 20000412, end: 20040101
  19. GLYBURIDE [Concomitant]
     Indication: DIABETES MELLITUS
     Route: 065
  20. RAMIPRIL [Concomitant]
     Indication: HYPERTENSION
     Route: 065
     Dates: start: 19900101
  21. ACARBOSE [Concomitant]
     Route: 065
     Dates: start: 20000107
  22. PRAVASTATIN SODIUM [Concomitant]
     Indication: BLOOD CHOLESTEROL INCREASED
     Route: 065
     Dates: start: 20000101, end: 20040101
  23. ROSIGLITAZONE MALEATE [Concomitant]
     Route: 065
  24. ROSIGLITAZONE MALEATE [Concomitant]
     Route: 065
  25. PIOGLITAZONE HYDROCHLORIDE [Concomitant]
     Indication: DIABETES MELLITUS
     Route: 065
  26. INSULIN HUMAN, ISOPHANE [Concomitant]
     Indication: DIABETES MELLITUS
     Route: 065
  27. INSULIN HUMAN [Concomitant]
     Indication: DIABETES MELLITUS
     Route: 065
  28. RANITIDINE HYDROCHLORIDE [Concomitant]
     Route: 065
  29. CLOPIDOGREL BISULFATE [Concomitant]
     Indication: CEREBROVASCULAR ACCIDENT PROPHYLAXIS
     Route: 065
  30. NIFEDIPINE [Concomitant]
     Route: 065
     Dates: start: 20020305, end: 20020101
  31. AMITRIPTYLINE HYDROCHLORIDE [Concomitant]
     Indication: DEPRESSION
     Route: 065
     Dates: start: 20021028
  32. AMITRIPTYLINE HYDROCHLORIDE [Concomitant]
     Route: 065
     Dates: start: 20021028
  33. AMITRIPTYLINE HYDROCHLORIDE [Concomitant]
     Indication: ANXIETY
     Route: 065
     Dates: start: 20021028
  34. AMITRIPTYLINE HYDROCHLORIDE [Concomitant]
     Route: 065
     Dates: start: 20021028
  35. ALPRAZOLAM [Concomitant]
     Indication: DEPRESSION
     Route: 065
  36. ALPRAZOLAM [Concomitant]
     Indication: ANXIETY
     Route: 065
  37. SULFAMETHOXAZOLE [Concomitant]
     Route: 065
  38. SULFAMETHOXAZOLE [Concomitant]
     Route: 065
     Dates: start: 20010402
  39. OFLOXACIN [Concomitant]
     Route: 065
  40. OFLOXACIN [Concomitant]
     Route: 065
     Dates: start: 20011106
  41. NORFLOXACIN [Concomitant]
     Route: 065

REACTIONS (5)
  - AMNESIA [None]
  - BUNDLE BRANCH BLOCK RIGHT [None]
  - CEREBROVASCULAR ACCIDENT [None]
  - DEPRESSION [None]
  - ERECTILE DYSFUNCTION [None]
